FAERS Safety Report 10989182 (Version 2)
Quarter: 2015Q2

REPORT INFORMATION
  Report Type: Spontaneous
  Country: US (occurrence: US)
  Receive Date: 20150406
  Receipt Date: 20150630
  Transmission Date: 20150821
  Serious: Yes (Other)
  Sender: FDA-Public Use
  Company Number: US-AUROBINDO-AUR-APL-2015-02853

PATIENT
  Sex: Female
  Weight: 57 kg

DRUGS (17)
  1. LATOPROST [Suspect]
     Active Substance: LATANOPROST
  2. PREDNISONE. [Interacting]
     Active Substance: PREDNISONE
     Indication: PRODUCT USED FOR UNKNOWN INDICATION
     Dosage: UNK
     Route: 065
  3. CORTIZONE                          /00028601/ [Interacting]
     Active Substance: HYDROCORTISONE
     Indication: PRODUCT USED FOR UNKNOWN INDICATION
     Route: 065
  4. HYDROCODONE [Interacting]
     Active Substance: HYDROCODONE
     Indication: PAIN
     Dosage: 4 TO 6 TABLETS IN 24 HOURS 7.5/325 MG TABLET
     Route: 048
  5. PAROXETINE [Interacting]
     Active Substance: PAROXETINE\PAROXETINE HYDROCHLORIDE
     Indication: DEPRESSION
     Dosage: 20 MG, ONCE A DAY
     Route: 065
  6. QUINAPRIL [Interacting]
     Active Substance: QUINAPRIL\QUINAPRIL HYDROCHLORIDE
     Indication: HYPERTENSION
     Dosage: 20 MG, ONCE A DAY
     Route: 065
  7. MULTIVITAMIN                       /00097801/ [Interacting]
     Active Substance: VITAMINS
     Indication: PRODUCT USED FOR UNKNOWN INDICATION
     Dosage: UNK
     Route: 065
  8. HUMIRA [Interacting]
     Active Substance: ADALIMUMAB
     Indication: RHEUMATOID ARTHRITIS
     Route: 065
  9. HUMIRA [Interacting]
     Active Substance: ADALIMUMAB
     Indication: OSTEOARTHRITIS
  10. CALCIUM [Interacting]
     Active Substance: CALCIUM
     Indication: PRODUCT USED FOR UNKNOWN INDICATION
     Dosage: UNK
     Route: 065
  11. METHOTREXATE [Interacting]
     Active Substance: METHOTREXATE
     Indication: PRODUCT USED FOR UNKNOWN INDICATION
     Dosage: 2.5 MG,4 TABLETS  ONCE A DAY
     Route: 065
     Dates: start: 1998
  12. NAPROSYN [Interacting]
     Active Substance: NAPROXEN
     Indication: PRODUCT USED FOR UNKNOWN INDICATION
     Dosage: 400 MG, TWO TIMES A DAY
     Route: 065
  13. ORENCIA [Interacting]
     Active Substance: ABATACEPT
     Indication: RHEUMATOID ARTHRITIS
     Dosage: UNK
     Route: 065
     Dates: start: 2014, end: 201401
  14. GLIMEPIRIDE TABLETS USP 4MG [Suspect]
     Active Substance: GLIMEPIRIDE
     Indication: DIABETES MELLITUS
     Dosage: 4 MG, ONCE A DAY
     Route: 065
  15. METFORMIN [Interacting]
     Active Substance: METFORMIN HYDROCHLORIDE
     Indication: DIABETES MELLITUS
     Dosage: 1000 MG, TWO TIMES A DAY
     Route: 065
  16. ORENCIA [Interacting]
     Active Substance: ABATACEPT
     Indication: OSTEOARTHRITIS
  17. COMBIGAN [Interacting]
     Active Substance: BRIMONIDINE TARTRATE\TIMOLOL MALEATE
     Indication: GLAUCOMA
     Dosage: UNK, TWO TIMES A DAY
     Route: 065

REACTIONS (16)
  - Feeling abnormal [Unknown]
  - Neck pain [Unknown]
  - Pain [Unknown]
  - Dyspnoea [Unknown]
  - Cartilage graft [Unknown]
  - Condition aggravated [Unknown]
  - Bone density abnormal [Unknown]
  - Myalgia [Unknown]
  - Headache [Unknown]
  - Drug ineffective [Unknown]
  - Arthralgia [Unknown]
  - Malaise [Unknown]
  - Peripheral swelling [Unknown]
  - Musculoskeletal stiffness [Unknown]
  - Drug interaction [Unknown]
  - Hepatitis B [Unknown]
